FAERS Safety Report 25704263 (Version 2)
Quarter: 2025Q3

REPORT INFORMATION
  Report Type: Spontaneous
  Country: EU (occurrence: EU)
  Receive Date: 20250820
  Receipt Date: 20250901
  Transmission Date: 20251020
  Serious: Yes (Hospitalization)
  Sender: ALEXION PHARMACEUTICALS
  Company Number: EU-KRKA-PT2025K14770LIT

PATIENT
  Age: 49 Year
  Sex: Male

DRUGS (7)
  1. DAPAGLIFLOZIN [Suspect]
     Active Substance: DAPAGLIFLOZIN
     Indication: Heart failure with reduced ejection fraction
     Dosage: 10 MG, 1X PER DAY
     Route: 065
  2. BISOPROLOL [Suspect]
     Active Substance: BISOPROLOL
     Indication: Heart failure with reduced ejection fraction
     Dosage: 10 MG, 1X PER DAY
     Route: 065
  3. IVABRADINE [Suspect]
     Active Substance: IVABRADINE
     Indication: Heart failure with reduced ejection fraction
     Route: 065
  4. SACUBITRIL\VALSARTAN [Suspect]
     Active Substance: SACUBITRIL\VALSARTAN
     Indication: Heart failure with reduced ejection fraction
     Route: 065
  5. FUROSEMIDE [Suspect]
     Active Substance: FUROSEMIDE
     Indication: Heart failure with reduced ejection fraction
     Dosage: 40 MG, 3X PER DAY
     Route: 065
  6. METOLAZONE [Suspect]
     Active Substance: METOLAZONE
     Indication: Heart failure with reduced ejection fraction
     Route: 065
  7. SPIRONOLACTONE [Suspect]
     Active Substance: SPIRONOLACTONE
     Indication: Heart failure with reduced ejection fraction
     Dosage: 50 MG, 1X PER DAY
     Route: 065

REACTIONS (3)
  - Drug ineffective [Recovering/Resolving]
  - Dizziness [Recovered/Resolved]
  - Discomfort [Recovered/Resolved]
